FAERS Safety Report 6302364-0 (Version None)
Quarter: 2009Q3

REPORT INFORMATION
  Report Type: 
  Country: None (occurrence: None)
  Receive Date: 20090810
  Receipt Date: 20090731
  Transmission Date: 20100115
  Serious: Yes (Hospitalization, Other)
  Sender: FDA-Public Use
  Company Number: PHHY2009JP30524

PATIENT
  Age: 77 Year
  Sex: Female

DRUGS (9)
  1. TEGRETOL [Suspect]
     Indication: TRIGEMINAL NEURALGIA
     Dosage: 200 MG, IN 2 DAILY DOSES
     Route: 048
  2. TEGRETOL [Suspect]
     Dosage: 600MG, UNK
  3. CLARITHROMYCIN [Suspect]
     Dosage: UNK
  4. LOXONIN [Concomitant]
     Dosage: UNK
     Route: 048
  5. SELBEX [Concomitant]
     Dosage: UNK
     Route: 048
  6. BENET [Concomitant]
     Dosage: UNK
     Route: 048
  7. MYSLEE [Concomitant]
     Dosage: UNK
     Route: 048
  8. MUCOSTA [Concomitant]
     Dosage: UNK
     Route: 048
  9. FLUITRAN [Concomitant]
     Dosage: UNK
     Route: 048

REACTIONS (3)
  - DEMENTIA [None]
  - DYSARTHRIA [None]
  - FEELING ABNORMAL [None]
